FAERS Safety Report 7392575-8 (Version None)
Quarter: 2011Q1

REPORT INFORMATION
  Report Type: 
  Country: None (occurrence: None)
  Receive Date: 20110330
  Receipt Date: 20110330
  Transmission Date: 20110831
  Serious: Yes (Hospitalization)
  Sender: FDA-Public Use
  Company Number: None

PATIENT
  Sex: Female
  Weight: 110 kg

DRUGS (2)
  1. ETOPOSIDE [Suspect]
     Dosage: 50MG
  2. CISPLATIN [Suspect]
     Dosage: 162.4MG

REACTIONS (5)
  - TOXICITY TO VARIOUS AGENTS [None]
  - CHEST PAIN [None]
  - INFUSION RELATED REACTION [None]
  - HYPERSENSITIVITY [None]
  - BACK PAIN [None]
